FAERS Safety Report 25963982 (Version 1)
Quarter: 2025Q4

REPORT INFORMATION
  Report Type: Spontaneous
  Country: US (occurrence: US)
  Receive Date: 20251027
  Receipt Date: 20251027
  Transmission Date: 20260117
  Serious: Yes (Hospitalization)
  Sender: REGENERON
  Company Number: US-REGENERON PHARMACEUTICALS, INC.-2025-168789

PATIENT
  Sex: Male

DRUGS (1)
  1. LYNOZYFIC [Suspect]
     Active Substance: LINVOSELTAMAB-GCPT
     Indication: Plasma cell myeloma refractory
     Dosage: 200 MG
     Route: 042

REACTIONS (1)
  - Chest pain [Unknown]
